FAERS Safety Report 25376727 (Version 1)
Quarter: 2025Q2

REPORT INFORMATION
  Report Type: Spontaneous
  Country: US (occurrence: US)
  Receive Date: 20250530
  Receipt Date: 20250530
  Transmission Date: 20250716
  Serious: No
  Sender: CIPLA
  Company Number: US-CIPLA LTD.-2024US04750

PATIENT

DRUGS (3)
  1. ALBUTEROL [Suspect]
     Active Substance: ALBUTEROL
     Indication: Asthma
     Route: 065
  2. ALBUTEROL [Suspect]
     Active Substance: ALBUTEROL
     Dates: start: 202404
  3. ALBUTEROL [Suspect]
     Active Substance: ALBUTEROL
     Dates: start: 20240429

REACTIONS (3)
  - Cough [Unknown]
  - Device delivery system issue [Unknown]
  - Wrong technique in product usage process [Unknown]

NARRATIVE: CASE EVENT DATE: 20240429
